APPROVED DRUG PRODUCT: BACLOFEN
Active Ingredient: BACLOFEN
Strength: 5MG
Dosage Form/Route: TABLET;ORAL
Application: A212378 | Product #003 | TE Code: AB
Applicant: ANDAS 5 HOLDING LLC
Approved: Apr 30, 2021 | RLD: No | RS: No | Type: RX